FAERS Safety Report 21500907 (Version 2)
Quarter: 2024Q1

REPORT INFORMATION
  Report Type: Report from Study
  Country: US (occurrence: US)
  Receive Date: 20221025
  Receipt Date: 20240310
  Transmission Date: 20240409
  Serious: Yes (Other)
  Sender: FDA-Public Use
  Company Number: US-ABBVIE-4156923

PATIENT
  Sex: Male

DRUGS (2)
  1. SKYRIZI [Suspect]
     Active Substance: RISANKIZUMAB-RZAA
     Indication: Psoriasis
     Route: 058
  2. COVID-19 vaccine [Concomitant]
     Indication: COVID-19 immunisation

REACTIONS (3)
  - Retinal tear [Unknown]
  - Hypoacusis [Recovered/Resolved]
  - Retinal disorder [Recovered/Resolved]
